FAERS Safety Report 20320515 (Version 1)
Quarter: 2022Q1

REPORT INFORMATION
  Report Type: Spontaneous
  Country: US (occurrence: US)
  Receive Date: 20220111
  Receipt Date: 20220111
  Transmission Date: 20220423
  Serious: No
  Sender: FDA-Public Use
  Company Number: US-GLENMARK PHARMACEUTICALS-2021GMK069093

PATIENT

DRUGS (2)
  1. ADAPALENE [Suspect]
     Active Substance: ADAPALENE
     Indication: Acne
     Dosage: UNK, OD; IN THE EVENING
     Route: 061
     Dates: start: 202111, end: 20211119
  2. ADAPALENE [Suspect]
     Active Substance: ADAPALENE
     Indication: Scar

REACTIONS (7)
  - Rash [Recovering/Resolving]
  - Scar [Recovering/Resolving]
  - Condition aggravated [Recovering/Resolving]
  - Scar inflammation [Recovering/Resolving]
  - Product use in unapproved indication [Unknown]
  - Skin burning sensation [Recovering/Resolving]
  - Erythema [Recovering/Resolving]
